FAERS Safety Report 5083484-8 (Version None)
Quarter: 2006Q3

REPORT INFORMATION
  Report Type: 
  Country: None (occurrence: None)
  Receive Date: 20060818
  Receipt Date: 20060815
  Transmission Date: 20061208
  Serious: Yes (Disabling)
  Sender: FDA-Public Use
  Company Number: GB-GLAXOSMITHKLINE-B0434161A

PATIENT
  Age: 60 Year
  Sex: Male

DRUGS (12)
  1. NIQUITIN CQ 21MG [Suspect]
     Route: 062
     Dates: start: 20060419
  2. NIQUITIN CQ 14MG [Suspect]
     Route: 062
     Dates: end: 20060526
  3. NICOTINELL PATCH [Suspect]
     Dosage: 15MG UNKNOWN
     Route: 062
  4. NICOTINELL PATCH [Suspect]
     Dosage: 21MG UNKNOWN
     Route: 062
  5. ASPIRIN [Concomitant]
     Route: 065
  6. ATORVASTATIN CALCIUM [Concomitant]
     Dosage: 10MG PER DAY
     Route: 065
     Dates: start: 20050522
  7. CACIT [Concomitant]
     Indication: OSTEOPOROSIS
     Route: 048
     Dates: start: 20040402
  8. NITROLINGUAL [Concomitant]
     Dates: start: 20040425
  9. PREDNISOLONE [Concomitant]
     Indication: ASTHMA
     Route: 055
     Dates: start: 20041208
  10. SALMETEROL [Concomitant]
     Indication: ASTHMA
     Route: 055
     Dates: start: 20060308
  11. VENTOLIN [Concomitant]
     Indication: ASTHMA
     Route: 055
     Dates: start: 20060622
  12. UNKNOWN [Concomitant]
     Dates: start: 20060626

REACTIONS (3)
  - HYPERAESTHESIA [None]
  - INFLAMMATION [None]
  - SKIN HYPERTROPHY [None]
